FAERS Safety Report 7428807-7 (Version None)
Quarter: 2011Q2

REPORT INFORMATION
  Report Type: 
  Country: None (occurrence: None)
  Receive Date: 20110421
  Receipt Date: 20110412
  Transmission Date: 20111010
  Serious: No
  Sender: FDA-Public Use
  Company Number: US-BRISTOL-MYERS SQUIBB COMPANY-15605892

PATIENT
  Age: 57 Year
  Sex: Male

DRUGS (5)
  1. ASPIRIN [Concomitant]
     Dosage: 1DF:81 UNITS NOS
  2. METOPROLOL [Concomitant]
  3. SIMVASTATIN [Concomitant]
  4. AVALIDE [Suspect]
     Indication: HYPERTENSION
     Dosage: 1DF:2 TABS ALSO 300/12.5 UNITS NOS
     Route: 048
     Dates: start: 20090427
  5. CELEXA [Concomitant]
     Dosage: 1DF=20 UNITS NOS

REACTIONS (1)
  - DIZZINESS [None]
